FAERS Safety Report 9793133 (Version 3)
Quarter: 2014Q2

REPORT INFORMATION
  Report Type: Spontaneous
  Country: US (occurrence: US)
  Receive Date: 20140102
  Receipt Date: 20140408
  Transmission Date: 20141212
  Serious: No
  Sender: FDA-Public Use
  Company Number: US-JNJFOC-20131207410

PATIENT
  Age: 74 Year
  Sex: Male
  Weight: 98.43 kg

DRUGS (14)
  1. XARELTO [Suspect]
     Indication: THROMBOSIS PROPHYLAXIS
     Dosage: STRENGTH: 10 MG
     Route: 048
     Dates: start: 20131119, end: 20131209
  2. XARELTO [Suspect]
     Indication: THROMBOSIS PROPHYLAXIS
     Route: 048
  3. XARELTO [Suspect]
     Indication: THROMBOSIS PROPHYLAXIS
     Dosage: STRENGTH: 20 MG
     Route: 048
     Dates: start: 20131210
  4. XARELTO [Suspect]
     Indication: THROMBOSIS
     Route: 048
  5. XARELTO [Suspect]
     Indication: THROMBOSIS
     Dosage: STRENGTH: 10 MG
     Route: 048
     Dates: start: 20131119, end: 20131209
  6. XARELTO [Suspect]
     Indication: THROMBOSIS
     Dosage: STRENGTH: 20 MG
     Route: 048
     Dates: start: 20131210
  7. XARELTO [Suspect]
     Indication: EMBOLISM VENOUS
     Route: 048
  8. XARELTO [Suspect]
     Indication: EMBOLISM VENOUS
     Dosage: STRENGTH: 20 MG
     Route: 048
     Dates: start: 20131210
  9. XARELTO [Suspect]
     Indication: EMBOLISM VENOUS
     Dosage: STRENGTH: 10 MG
     Route: 048
     Dates: start: 20131119, end: 20131209
  10. XARELTO [Suspect]
     Indication: HIP SURGERY
     Route: 048
  11. XARELTO [Suspect]
     Indication: HIP SURGERY
     Dosage: STRENGTH: 10 MG
     Route: 048
     Dates: start: 20131119, end: 20131209
  12. XARELTO [Suspect]
     Indication: HIP SURGERY
     Dosage: STRENGTH: 20 MG
     Route: 048
     Dates: start: 20131210
  13. MICARDIS [Concomitant]
     Indication: HYPERTENSION
     Route: 048
     Dates: start: 20111024
  14. CELEBREX [Concomitant]
     Route: 065

REACTIONS (3)
  - Deep vein thrombosis [Recovered/Resolved]
  - Incorrect dose administered [Unknown]
  - Wrong technique in drug usage process [Unknown]
